FAERS Safety Report 8055865-1 (Version None)
Quarter: 2012Q1

REPORT INFORMATION
  Report Type: 
  Country: None (occurrence: None)
  Receive Date: 20120119
  Receipt Date: 20120119
  Transmission Date: 20120608
  Serious: Yes (Other)
  Sender: FDA-Public Use
  Company Number: None

PATIENT

DRUGS (1)
  1. CIPROFLOXACIN [Suspect]

REACTIONS (11)
  - HYPOAESTHESIA [None]
  - MYALGIA [None]
  - NEURALGIA [None]
  - CONFUSIONAL STATE [None]
  - FEELING ABNORMAL [None]
  - DEPRESSION [None]
  - MALAISE [None]
  - INFLUENZA LIKE ILLNESS [None]
  - MUSCLE TWITCHING [None]
  - TREMOR [None]
  - TINNITUS [None]
